FAERS Safety Report 5669667-4 (Version None)
Quarter: 2008Q1

REPORT INFORMATION
  Report Type: 
  Country: None (occurrence: None)
  Receive Date: 20080317
  Receipt Date: 20080306
  Transmission Date: 20080703
  Serious: Yes (Other)
  Sender: FDA-Public Use
  Company Number: DE-ROCHE-549574

PATIENT
  Age: 49 Year
  Sex: Male
  Weight: 75 kg

DRUGS (1)
  1. TAMIFLU [Suspect]
     Dosage: DOSAGE REGIMEN REPORTED AS 2 X75 MG/DAY.
     Route: 065
     Dates: start: 20080218, end: 20080219

REACTIONS (2)
  - HAEMATURIA [None]
  - PROTEIN URINE PRESENT [None]
